FAERS Safety Report 23431796 (Version 1)
Quarter: 2024Q1

REPORT INFORMATION
  Report Type: Spontaneous
  Country: KR (occurrence: KR)
  Receive Date: 20240123
  Receipt Date: 20240123
  Transmission Date: 20240410
  Serious: Yes (Other)
  Sender: FDA-Public Use
  Company Number: KR-SUN PHARMACEUTICAL INDUSTRIES LTD-2024RR-427497

PATIENT
  Age: 70 Year
  Sex: Female

DRUGS (2)
  1. TEMOZOLOMIDE [Suspect]
     Active Substance: TEMOZOLOMIDE
     Indication: Neoplasm malignant
     Dosage: UNK
     Route: 065
  2. CAPECITABINE [Suspect]
     Active Substance: CAPECITABINE
     Indication: Neoplasm malignant
     Dosage: 7 CYCLES OF TEMOZOLOMID+CAPECITABIN
     Route: 065

REACTIONS (5)
  - Disease progression [Unknown]
  - Condition aggravated [Unknown]
  - Headache [Unknown]
  - Diplopia [Unknown]
  - Eyelid ptosis [Unknown]
